FAERS Safety Report 7456822-6 (Version None)
Quarter: 2011Q2

REPORT INFORMATION
  Report Type: 
  Country: None (occurrence: None)
  Receive Date: 20110504
  Receipt Date: 20110426
  Transmission Date: 20111010
  Serious: Yes (Other)
  Sender: FDA-Public Use
  Company Number: US-BIOGENIDEC-2011BI015553

PATIENT
  Age: 60 Year
  Sex: Female

DRUGS (1)
  1. AVONEX [Suspect]
     Indication: MULTIPLE SCLEROSIS
     Route: 030
     Dates: start: 20070923, end: 20110101

REACTIONS (6)
  - MUSCULOSKELETAL STIFFNESS [None]
  - SENSATION OF HEAVINESS [None]
  - PAIN IN EXTREMITY [None]
  - STRESS [None]
  - BRAIN NEOPLASM BENIGN [None]
  - BLOOD GLUCOSE INCREASED [None]
